FAERS Safety Report 10169480 (Version 2)
Quarter: 2014Q2

REPORT INFORMATION
  Report Type: Spontaneous
  Country: JP (occurrence: JP)
  Receive Date: 20140513
  Receipt Date: 20140527
  Transmission Date: 20141212
  Serious: Yes (Hospitalization)
  Sender: FDA-Public Use
  Company Number: JP-B.I. PHARMACEUTICALS,INC./RIDGEFIELD-2014-BI-21113NB

PATIENT
  Age: 9 Decade
  Sex: Female

DRUGS (2)
  1. PRAZAXA [Suspect]
     Indication: ATRIAL FIBRILLATION
     Dosage: 300 MG
     Route: 048
     Dates: end: 201405
  2. PRAZAXA [Suspect]
     Dosage: 220 MG
     Route: 048
     Dates: start: 20140505

REACTIONS (1)
  - Femur fracture [Recovered/Resolved]
